FAERS Safety Report 9342882 (Version 1)
Quarter: 2013Q2

REPORT INFORMATION
  Report Type: Spontaneous
  Country: CN (occurrence: CN)
  Receive Date: 20130611
  Receipt Date: 20130611
  Transmission Date: 20140414
  Serious: Yes (Hospitalization)
  Sender: FDA-Public Use
  Company Number: CN-GLAXOSMITHKLINE-B0895274A

PATIENT
  Age: 14 Year
  Sex: Male
  Weight: 47 kg

DRUGS (3)
  1. LAMICTAL [Suspect]
     Indication: EPILEPSY
     Dosage: 25MG PER DAY
     Route: 048
     Dates: start: 20130422, end: 20130503
  2. LAMICTAL [Suspect]
     Indication: EPILEPSY
     Dosage: 75MG PER DAY
     Route: 048
     Dates: start: 20130504, end: 20130512
  3. VALPROATE MAGNESIUM [Suspect]
     Indication: EPILEPSY
     Route: 048
     Dates: start: 20130422, end: 20130512

REACTIONS (4)
  - Rash [Recovered/Resolved with Sequelae]
  - Pyrexia [Recovering/Resolving]
  - Oedema [Unknown]
  - Skin exfoliation [Unknown]
